FAERS Safety Report 7089511-0 (Version None)
Quarter: 2010Q4

REPORT INFORMATION
  Report Type: 
  Country: None (occurrence: None)
  Receive Date: 20101108
  Receipt Date: 20101103
  Transmission Date: 20110411
  Serious: Yes (Death, Hospitalization)
  Sender: FDA-Public Use
  Company Number: MX-JNJFOC-20101006127

PATIENT
  Age: 65 Year
  Sex: Male
  Weight: 63 kg

DRUGS (5)
  1. REOPRO [Suspect]
     Indication: PERCUTANEOUS CORONARY INTERVENTION
     Route: 042
  2. REOPRO [Suspect]
     Route: 042
  3. CLOPIDOGREL [Concomitant]
     Indication: ILL-DEFINED DISORDER
  4. ACETYLSALICYLIC ACID [Concomitant]
     Indication: ILL-DEFINED DISORDER
  5. HEPARIN [Concomitant]
     Indication: PERCUTANEOUS CORONARY INTERVENTION

REACTIONS (1)
  - SUBARACHNOID HAEMORRHAGE [None]
